FAERS Safety Report 6037799-7 (Version None)
Quarter: 2009Q1

REPORT INFORMATION
  Report Type: 
  Country: None (occurrence: None)
  Receive Date: 20090113
  Receipt Date: 20090105
  Transmission Date: 20090719
  Serious: Yes (Disabling)
  Sender: FDA-Public Use
  Company Number: DSA_32978_2009

PATIENT
  Age: 77 Year
  Sex: Male

DRUGS (4)
  1. TIAZAC [Suspect]
     Indication: DRUG USE FOR UNKNOWN INDICATION
     Dosage: 180 ML QD
  2. DIOVAN/01319601/ [Concomitant]
  3. ASPIRIN 10GR TIMED DISINTEGRATION TAB [Concomitant]
  4. REACTINE/00884301/ [Concomitant]

REACTIONS (5)
  - DIZZINESS [None]
  - HEADACHE [None]
  - MEMORY IMPAIRMENT [None]
  - PSYCHOMOTOR RETARDATION [None]
  - UNEVALUABLE EVENT [None]
